FAERS Safety Report 4532257-0 (Version None)
Quarter: 2004Q4

REPORT INFORMATION
  Report Type: 
  Country: None (occurrence: None)
  Receive Date: 20041217
  Receipt Date: 20041214
  Transmission Date: 20050328
  Serious: Yes (Death)
  Sender: FDA-Public Use
  Company Number: 208300

PATIENT
  Age: 54 Year
  Sex: Female
  Weight: 52.6 kg

DRUGS (5)
  1. AVASTIN [Suspect]
     Indication: SMALL INTESTINE CARCINOMA
     Dosage: 270 MG, Q2W, INTRAVENOUS
     Route: 042
     Dates: start: 20040624
  2. LEUCOVORIN CALCIUM [Concomitant]
  3. FLUOROURACIL [Concomitant]
  4. ALOXI (PALONOSETRON) [Concomitant]
  5. PHENERGAN [Concomitant]

REACTIONS (2)
  - HAEMATEMESIS [None]
  - UPPER GASTROINTESTINAL HAEMORRHAGE [None]
